FAERS Safety Report 10032270 (Version 3)
Quarter: 2014Q2

REPORT INFORMATION
  Report Type: Spontaneous
  Country: JP (occurrence: JP)
  Receive Date: 20140324
  Receipt Date: 20140414
  Transmission Date: 20141212
  Serious: Yes (Hospitalization)
  Sender: FDA-Public Use
  Company Number: JP-NAPPMUNDI-GBR-2014-0017558

PATIENT
  Age: 61 Year
  Sex: Male

DRUGS (9)
  1. OXYCODONE HCL PR TABLET [Suspect]
     Indication: CANCER PAIN
     Dosage: 20 MG, BID
     Route: 048
     Dates: start: 20140228, end: 20140305
  2. OXYCODONE HCL PR TABLET [Suspect]
     Dosage: 5 MG, BID
     Route: 048
     Dates: start: 20140218, end: 20140227
  3. NESINA [Suspect]
     Indication: DIABETES MELLITUS
     Dosage: 12.5 MG, DAILY
     Route: 048
     Dates: start: 20140212, end: 20140226
  4. PZC /00023403/ [Suspect]
     Indication: ANTIEMETIC SUPPORTIVE CARE
     Dosage: 8 MG, DAILY
     Route: 048
     Dates: start: 20140218, end: 20140221
  5. GEMZAR [Suspect]
     Indication: PANCREATIC CARCINOMA
     Dosage: 1800 MG, DAILY
     Dates: start: 20140304, end: 20140304
  6. GEMZAR [Suspect]
     Dosage: UNK
     Route: 065
     Dates: start: 20140218, end: 20140221
  7. CELECOX [Suspect]
     Indication: CANCER PAIN
     Dosage: 200 MG, DAILY
     Route: 048
     Dates: start: 20140303, end: 20140305
  8. GASTER D [Suspect]
     Indication: PROPHYLAXIS AGAINST GASTROINTESTINAL ULCER
     Dosage: 40 MG, DAILY
     Route: 048
     Dates: start: 20140303, end: 20140305
  9. ZITHROMAC [Suspect]
     Indication: PNEUMONIA
     Dosage: 500 MG, DAILY
     Route: 048
     Dates: start: 20140305, end: 20140305

REACTIONS (2)
  - Platelet count decreased [Not Recovered/Not Resolved]
  - Pneumonia [Unknown]
